FAERS Safety Report 14185793 (Version 1)
Quarter: 2017Q4

REPORT INFORMATION
  Report Type: Report from Study
  Country: US (occurrence: US)
  Receive Date: 20171114
  Receipt Date: 20171114
  Transmission Date: 20180321
  Serious: Yes (Death)
  Sender: FDA-Public Use
  Company Number: US-ROCHE-GNE010773

PATIENT
  Age: 63 Year
  Sex: Female
  Weight: 45.5 kg

DRUGS (1)
  1. ALTEPLASE. [Suspect]
     Active Substance: ALTEPLASE
     Indication: ISCHAEMIC STROKE
     Dosage: DOSE 53.9 MG
     Route: 042

REACTIONS (1)
  - Cerebral haematoma [Fatal]
